FAERS Safety Report 4841345-0 (Version None)
Quarter: 2005Q4

REPORT INFORMATION
  Report Type: 
  Country: None (occurrence: None)
  Receive Date: 20051130
  Receipt Date: 20051117
  Transmission Date: 20060501
  Serious: Yes (Other)
  Sender: FDA-Public Use
  Company Number: 001#1#2005-00295

PATIENT
  Age: 59 Year
  Sex: Male

DRUGS (3)
  1. ATMADISC [Suspect]
     Dosage: 1PUFF TWICE PER DAY
     Route: 055
     Dates: start: 20050909, end: 20051111
  2. INHALATIONAL STEROIDS [Concomitant]
     Route: 055
  3. TIOTROPIUM BROMIDE [Concomitant]
     Route: 055
     Dates: end: 20051001

REACTIONS (1)
  - PSORIASIS [None]
